FAERS Safety Report 19752957 (Version 4)
Quarter: 2021Q4

REPORT INFORMATION
  Report Type: Report from Study
  Country: US (occurrence: US)
  Receive Date: 20210826
  Receipt Date: 20211201
  Transmission Date: 20220303
  Serious: Yes (Hospitalization, Other)
  Sender: FDA-Public Use
  Company Number: NVSC2021US193008

PATIENT
  Age: 55 Year
  Sex: Male

DRUGS (3)
  1. ENTRESTO [Suspect]
     Active Substance: SACUBITRIL\VALSARTAN
     Indication: Cardiac failure chronic
     Dosage: UNK, QD
     Route: 065
     Dates: start: 20210818
  2. MIDODRINE [Suspect]
     Active Substance: MIDODRINE
     Indication: Product used for unknown indication
     Dosage: UNK
     Route: 065
  3. INSULIN NOS [Suspect]
     Active Substance: INSULIN NOS
     Indication: Product used for unknown indication
     Dosage: UNK
     Route: 065

REACTIONS (16)
  - Chest pain [Unknown]
  - Nervous system disorder [Unknown]
  - Diabetes mellitus [Unknown]
  - Coma [Unknown]
  - Blindness [Unknown]
  - Cardiac dysfunction [Unknown]
  - Paralysis [Unknown]
  - Myocardial infarction [Unknown]
  - Cerebrovascular insufficiency [Unknown]
  - Dizziness [Unknown]
  - Cough [Unknown]
  - Poor peripheral circulation [Unknown]
  - Skin discolouration [Unknown]
  - Musculoskeletal discomfort [Unknown]
  - Withdrawal syndrome [Unknown]
  - Inappropriate schedule of product administration [Unknown]

NARRATIVE: CASE EVENT DATE: 20210818
